FAERS Safety Report 7289247-7 (Version None)
Quarter: 2011Q1

REPORT INFORMATION
  Report Type: 
  Country: None (occurrence: None)
  Receive Date: 20110211
  Receipt Date: 20090813
  Transmission Date: 20110831
  Serious: Yes (Other)
  Sender: FDA-Public Use
  Company Number: PHHY2009IN67111

PATIENT
  Sex: Male

DRUGS (10)
  1. SOLU-MEDROL [Concomitant]
     Dosage: 250 MG, QD
  2. SIMULECT [Suspect]
     Indication: IMMUNOSUPPRESSION
     Dosage: 20 MG, UNK
     Dates: start: 20090624
  3. MYCOPHENOLATE MOFETIL [Concomitant]
     Dosage: 2 G, QD
  4. CELLCEPT [Concomitant]
     Dosage: TWO TIMES A DAY
  5. SOLU-MEDROL [Concomitant]
     Dosage: 125 MG, QD
  6. SOLU-MEDROL [Concomitant]
     Dosage: 500 MG, QD
  7. SIMULECT [Suspect]
     Indication: RENAL TRANSPLANT
     Dosage: 20 MG, UNK
     Dates: start: 20090620
  8. TACROLIMUS [Concomitant]
     Dosage: 0.1MG/KG/B.WT
  9. PANGRAF [Concomitant]
     Dosage: TWO TIMES A DAY
  10. DELSONE [Concomitant]

REACTIONS (4)
  - DISEASE RECURRENCE [None]
  - URINARY TRACT INFECTION [None]
  - TOXICITY TO VARIOUS AGENTS [None]
  - KIDNEY TRANSPLANT REJECTION [None]
